FAERS Safety Report 16614480 (Version 2)
Quarter: 2019Q3

REPORT INFORMATION
  Report Type: Spontaneous
  Country: US (occurrence: US)
  Receive Date: 20190723
  Receipt Date: 20190812
  Transmission Date: 20191004
  Serious: Yes (Hospitalization)
  Sender: FDA-Public Use
  Company Number: US-PFIZER INC-2019306378

PATIENT
  Age: 80 Year
  Sex: Female
  Weight: 90.7 kg

DRUGS (2)
  1. NEURONTIN [Suspect]
     Active Substance: GABAPENTIN
     Indication: NEUROPATHY PERIPHERAL
     Dosage: 300 MG, DAILY (3 TABLETS A DAY)
  2. NEURONTIN [Suspect]
     Active Substance: GABAPENTIN
     Dosage: 100 MG, 2X/DAY
     Dates: start: 20190315

REACTIONS (6)
  - Vision blurred [Recovering/Resolving]
  - Product use in unapproved indication [Unknown]
  - Off label use [Unknown]
  - Fall [Unknown]
  - Dizziness [Not Recovered/Not Resolved]
  - Balance disorder [Recovering/Resolving]

NARRATIVE: CASE EVENT DATE: 20190315
